FAERS Safety Report 22007573 (Version 1)
Quarter: 2023Q1

REPORT INFORMATION
  Report Type: Spontaneous
  Country: US (occurrence: US)
  Receive Date: 20230218
  Receipt Date: 20230218
  Transmission Date: 20230417
  Serious: Yes (Death, Other)
  Sender: FDA-Public Use
  Company Number: US-AMGEN-USASP2023025953

PATIENT

DRUGS (23)
  1. RITUXIMAB [Suspect]
     Active Substance: RITUXIMAB
     Indication: Burkitt^s lymphoma
     Route: 065
  2. RITUXIMAB [Suspect]
     Active Substance: RITUXIMAB
     Indication: B-cell lymphoma
  3. FILGRASTIM [Suspect]
     Active Substance: FILGRASTIM
     Indication: Prophylaxis
     Dosage: UNK
     Route: 065
  4. GEMCITABINE [Concomitant]
     Active Substance: GEMCITABINE
     Indication: Burkitt^s lymphoma
     Dosage: 1000 MILLIGRAM/M^2
  5. GEMCITABINE [Concomitant]
     Active Substance: GEMCITABINE
     Indication: B-cell lymphoma
  6. OXALIPLATIN [Concomitant]
     Active Substance: OXALIPLATIN
     Indication: Burkitt^s lymphoma
     Dosage: 1000 MILLIGRAM/M^2
     Route: 065
  7. OXALIPLATIN [Concomitant]
     Active Substance: OXALIPLATIN
     Indication: B-cell lymphoma
  8. OFATUMUMAB [Concomitant]
     Active Substance: OFATUMUMAB
     Indication: Burkitt^s lymphoma
     Dosage: UNK
     Route: 065
  9. OFATUMUMAB [Concomitant]
     Active Substance: OFATUMUMAB
     Indication: B-cell lymphoma
  10. OBINUTUZUMAB [Concomitant]
     Active Substance: OBINUTUZUMAB
     Indication: Burkitt^s lymphoma
     Dosage: UNK
     Route: 065
  11. OBINUTUZUMAB [Concomitant]
     Active Substance: OBINUTUZUMAB
     Indication: B-cell lymphoma
  12. CYTARABINE [Concomitant]
     Active Substance: CYTARABINE
     Indication: Burkitt^s lymphoma
     Dosage: UNK
     Route: 065
  13. CYTARABINE [Concomitant]
     Active Substance: CYTARABINE
     Indication: B-cell lymphoma
  14. ETOPOSIDE [Concomitant]
     Active Substance: ETOPOSIDE
     Indication: Burkitt^s lymphoma
     Dosage: UNK
     Route: 065
  15. ETOPOSIDE [Concomitant]
     Active Substance: ETOPOSIDE
     Indication: B-cell lymphoma
  16. VINCRISTINE [Concomitant]
     Active Substance: VINCRISTINE
     Indication: Burkitt^s lymphoma
     Dosage: UNK
     Route: 065
  17. VINCRISTINE [Concomitant]
     Active Substance: VINCRISTINE
     Indication: B-cell lymphoma
  18. PREDNISONE [Concomitant]
     Active Substance: PREDNISONE
     Indication: Burkitt^s lymphoma
     Dosage: UNK
     Route: 065
  19. PREDNISONE [Concomitant]
     Active Substance: PREDNISONE
     Indication: B-cell lymphoma
  20. DOXORUBICIN [Concomitant]
     Active Substance: DOXORUBICIN
     Indication: Burkitt^s lymphoma
     Dosage: UNK
     Route: 065
  21. DOXORUBICIN [Concomitant]
     Active Substance: DOXORUBICIN
     Indication: B-cell lymphoma
  22. CYCLOPHOSPHAMIDE [Concomitant]
     Active Substance: CYCLOPHOSPHAMIDE
     Indication: Burkitt^s lymphoma
     Dosage: UNK
     Route: 065
  23. CYCLOPHOSPHAMIDE [Concomitant]
     Active Substance: CYCLOPHOSPHAMIDE
     Indication: B-cell lymphoma

REACTIONS (15)
  - Death [Fatal]
  - Tumour lysis syndrome [Unknown]
  - Capillary leak syndrome [Unknown]
  - Thrombocytopenia [Unknown]
  - Pneumonia [Unknown]
  - Neutropenia [Unknown]
  - Febrile neutropenia [Unknown]
  - Abdominal infection [Unknown]
  - Aspartate aminotransferase increased [Unknown]
  - Gastrointestinal infection [Unknown]
  - Anaemia [Unknown]
  - Alanine aminotransferase increased [Unknown]
  - Respiratory tract infection [Unknown]
  - Drug ineffective for unapproved indication [Unknown]
  - Off label use [Unknown]
